FAERS Safety Report 6567176-1 (Version None)
Quarter: 2010Q1

REPORT INFORMATION
  Report Type: 
  Country: None (occurrence: None)
  Receive Date: 20100202
  Receipt Date: 20091214
  Transmission Date: 20100710
  Serious: Yes (Hospitalization, Other)
  Sender: FDA-Public Use
  Company Number: CHPA2009US22625

PATIENT
  Age: 66 Year
  Sex: Female
  Weight: 58.957 kg

DRUGS (2)
  1. MAALOX ANTACID/ANTIGAS MAX LIQ (NCH) [Suspect]
     Indication: DYSPEPSIA
     Dosage: UNK, UNK
     Route: 048
     Dates: end: 20090901
  2. MAALOX ANTACID/ANTIGAS MAX LIQ (NCH) [Suspect]
     Dosage: 1 TSP, ONCE/SINGLE
     Route: 048
     Dates: start: 20090901, end: 20090901

REACTIONS (11)
  - ABDOMINAL PAIN UPPER [None]
  - ASTHENIA [None]
  - ATRIAL FIBRILLATION [None]
  - CARDIAC PACEMAKER INSERTION [None]
  - CHEST DISCOMFORT [None]
  - DECREASED APPETITE [None]
  - DIARRHOEA [None]
  - GASTROENTERITIS [None]
  - MALAISE [None]
  - NAUSEA [None]
  - VOMITING [None]
